FAERS Safety Report 7851536-2 (Version None)
Quarter: 2011Q4

REPORT INFORMATION
  Report Type: 
  Country: None (occurrence: None)
  Receive Date: 20111017
  Receipt Date: 20111012
  Transmission Date: 20120403
  Serious: Yes (Other)
  Sender: FDA-Public Use
  Company Number: 2011029896

PATIENT
  Sex: Female

DRUGS (1)
  1. PRIVIGEN [Suspect]
     Indication: GUILLAIN-BARRE SYNDROME
     Dosage: (75 G 2X/2 WEEKS, 1 GRAM/IKILOGRAM INTRAVENOUS (NOT OTHERWISE SPECIFIED))
     Route: 042

REACTIONS (2)
  - DRUG INEFFECTIVE [None]
  - MUSCULAR WEAKNESS [None]
